FAERS Safety Report 6114160-8 (Version None)
Quarter: 2009Q1

REPORT INFORMATION
  Report Type: 
  Country: None (occurrence: None)
  Receive Date: 20090312
  Receipt Date: 20080419
  Transmission Date: 20090719
  Serious: No
  Sender: FDA-Public Use
  Company Number: US-ABBOTT-08P-163-0448109-00

PATIENT
  Age: 3 Year
  Sex: Male

DRUGS (1)
  1. DEPAKOTE [Suspect]
     Indication: EPILEPSY

REACTIONS (2)
  - EXCESSIVE EYE BLINKING [None]
  - EYE MOVEMENT DISORDER [None]
